FAERS Safety Report 9628082 (Version 3)
Quarter: 2014Q1

REPORT INFORMATION
  Report Type: Spontaneous
  Country: MX (occurrence: MX)
  Receive Date: 20131017
  Receipt Date: 20140106
  Transmission Date: 20141002
  Serious: Yes (Death, Hospitalization)
  Sender: FDA-Public Use
  Company Number: MX-ROCHE-1287671

PATIENT
  Age: 51 Year
  Sex: Male
  Weight: 52 kg

DRUGS (4)
  1. AVASTIN [Suspect]
     Indication: COLORECTAL CANCER
     Route: 065
  2. RADIOTHERAPY [Suspect]
     Indication: COLORECTAL CANCER
     Route: 065
     Dates: start: 201307, end: 201309
  3. GLIBENCLAMIDE [Concomitant]
     Indication: DIABETES MELLITUS
     Route: 065
     Dates: start: 2003
  4. METFORMIN [Concomitant]
     Indication: DIABETES MELLITUS
     Route: 065
     Dates: start: 2003

REACTIONS (5)
  - Cardiac arrest [Fatal]
  - Pain [Not Recovered/Not Resolved]
  - Haemoglobin decreased [Not Recovered/Not Resolved]
  - Lymphangitis [Unknown]
  - Radiation skin injury [Not Recovered/Not Resolved]
